FAERS Safety Report 8312996-6 (Version None)
Quarter: 2012Q2

REPORT INFORMATION
  Report Type: 
  Country: None (occurrence: None)
  Receive Date: 20120426
  Receipt Date: 20120418
  Transmission Date: 20120825
  Serious: Yes (Hospitalization, Other)
  Sender: FDA-Public Use
  Company Number: US-BAYER-2012-002986

PATIENT
  Age: 17 Year
  Sex: Female
  Weight: 45.351 kg

DRUGS (4)
  1. YAZ [Suspect]
     Indication: ACNE
     Route: 048
  2. YASMIN [Suspect]
     Indication: ACNE
     Dosage: UNK
     Route: 048
     Dates: start: 20040101
  3. ANTIBIOTICS [Concomitant]
  4. OGESTREL 0.5/50-21 [Concomitant]
     Dosage: UNK
     Dates: start: 20050201, end: 20070101

REACTIONS (8)
  - ANXIETY [None]
  - DEPRESSION [None]
  - EMOTIONAL DISTRESS [None]
  - CHOLECYSTITIS CHRONIC [None]
  - GALLBLADDER INJURY [None]
  - PAIN [None]
  - GENERAL PHYSICAL HEALTH DETERIORATION [None]
  - BILIARY DYSKINESIA [None]
